FAERS Safety Report 15106007 (Version 5)
Quarter: 2020Q1

REPORT INFORMATION
  Report Type: Spontaneous
  Country: US (occurrence: US)
  Receive Date: 20180704
  Receipt Date: 20200316
  Transmission Date: 20200409
  Serious: Yes (Other)
  Sender: FDA-Public Use
  Company Number: US-ASTRAZENECA-2018SE84687

PATIENT
  Age: 26337 Day
  Sex: Female
  Weight: 59.9 kg

DRUGS (56)
  1. NEXIUM 24HR [Suspect]
     Active Substance: ESOMEPRAZOLE MAGNESIUM
     Indication: GASTROOESOPHAGEAL REFLUX DISEASE
     Route: 048
     Dates: start: 2009, end: 2011
  2. PRILOSEC [Suspect]
     Active Substance: OMEPRAZOLE MAGNESIUM
     Indication: GASTROOESOPHAGEAL REFLUX DISEASE
     Route: 048
     Dates: start: 20160907
  3. TRICOR [Concomitant]
     Active Substance: FENOFIBRATE
     Route: 048
     Dates: start: 20070617
  4. RANITIDINE. [Concomitant]
     Active Substance: RANITIDINE
     Route: 048
     Dates: start: 2016, end: 2017
  5. TYLENOL [Concomitant]
     Active Substance: ACETAMINOPHEN
  6. POLYETHYLENE GLYCOL [Concomitant]
     Active Substance: POLYETHYLENE GLYCOLS
     Route: 048
     Dates: start: 2016, end: 2017
  7. ALBUTEROL. [Concomitant]
     Active Substance: ALBUTEROL
     Dates: start: 20160331, end: 20160429
  8. LEVOTHYROXINE. [Concomitant]
     Active Substance: LEVOTHYROXINE
  9. VITAMIN D [Concomitant]
     Active Substance: VITAMIN D NOS
  10. PRILOSEC OTC [Suspect]
     Active Substance: OMEPRAZOLE MAGNESIUM
     Indication: GASTROOESOPHAGEAL REFLUX DISEASE
     Route: 048
     Dates: start: 2014
  11. ZANTAC [Concomitant]
     Active Substance: RANITIDINE HYDROCHLORIDE
  12. FUROSEMIDE. [Concomitant]
     Active Substance: FUROSEMIDE
     Route: 065
  13. TIOTROPIUM [Concomitant]
     Active Substance: TIOTROPIUM
     Route: 048
     Dates: start: 2016, end: 2017
  14. LOVAZA [Concomitant]
     Active Substance: OMEGA-3-ACID ETHYL ESTERS
  15. GLUCOPHAGE [Concomitant]
     Active Substance: METFORMIN HYDROCHLORIDE
  16. PRILOSEC [Suspect]
     Active Substance: OMEPRAZOLE MAGNESIUM
     Indication: GASTROOESOPHAGEAL REFLUX DISEASE
     Dosage: GENERIC
     Route: 065
     Dates: start: 2014
  17. LOPRESSOR [Concomitant]
     Active Substance: METOPROLOL TARTRATE
     Route: 048
     Dates: start: 20071231
  18. ADVAIR DISKUS [Concomitant]
     Active Substance: FLUTICASONE PROPIONATE\SALMETEROL XINAFOATE
  19. METFORMIN [Concomitant]
     Active Substance: METFORMIN HYDROCHLORIDE
     Route: 048
     Dates: start: 20071126
  20. PANTOPRAZOLE [Concomitant]
     Active Substance: PANTOPRAZOLE
     Dates: start: 20160331, end: 20160429
  21. AVANDIA [Concomitant]
     Active Substance: ROSIGLITAZONE MALEATE
  22. LANOXIN [Concomitant]
     Active Substance: DIGOXIN
  23. LANTUS SOLOSTAR [Concomitant]
     Active Substance: INSULIN GLARGINE
  24. VYTORIN [Concomitant]
     Active Substance: EZETIMIBE\SIMVASTATIN
  25. NEXIUM [Suspect]
     Active Substance: ESOMEPRAZOLE MAGNESIUM
     Indication: GASTROOESOPHAGEAL REFLUX DISEASE
     Route: 048
     Dates: start: 2009, end: 2011
  26. PRILOSEC OTC [Suspect]
     Active Substance: OMEPRAZOLE MAGNESIUM
     Indication: GASTROOESOPHAGEAL REFLUX DISEASE
     Route: 048
     Dates: start: 2009, end: 2011
  27. COMBIVENT [Concomitant]
     Active Substance: ALBUTEROL SULFATE\IPRATROPIUM BROMIDE
  28. VITAMIN D3 [Concomitant]
     Active Substance: CHOLECALCIFEROL
  29. LIPASE [Concomitant]
     Active Substance: LIPASE
  30. VALIUM [Concomitant]
     Active Substance: DIAZEPAM
     Dates: start: 20160330
  31. MONTELUKAST [Concomitant]
     Active Substance: MONTELUKAST SODIUM
     Route: 048
     Dates: start: 2016, end: 2017
  32. TOPROL XL [Concomitant]
     Active Substance: METOPROLOL SUCCINATE
  33. PULMICORT TURBUHALER [Concomitant]
     Active Substance: BUDESONIDE
  34. LISINOPRIL. [Concomitant]
     Active Substance: LISINOPRIL
  35. EZETIMIBE. [Concomitant]
     Active Substance: EZETIMIBE
  36. SODIUM CHLORIDE. [Concomitant]
     Active Substance: SODIUM CHLORIDE
  37. LIDOCAINE. [Concomitant]
     Active Substance: LIDOCAINE
  38. BENADRYL [Concomitant]
     Active Substance: DIPHENHYDRAMINE HYDROCHLORIDE
     Dates: start: 20160330
  39. PEPCID [Concomitant]
     Active Substance: FAMOTIDINE
     Dates: start: 20160331
  40. ALBUTEROL SULFATE. [Concomitant]
     Active Substance: ALBUTEROL SULFATE
  41. NITROGLYCERIN. [Concomitant]
     Active Substance: NITROGLYCERIN
  42. CREON [Concomitant]
     Active Substance: PANCRELIPASE AMYLASE\PANCRELIPASE LIPASE\PANCRELIPASE PROTEASE
  43. NEXIUM [Suspect]
     Active Substance: ESOMEPRAZOLE MAGNESIUM
     Indication: GASTROOESOPHAGEAL REFLUX DISEASE
     Route: 048
     Dates: start: 2007, end: 2016
  44. NEXIUM [Suspect]
     Active Substance: ESOMEPRAZOLE MAGNESIUM
     Indication: GASTROOESOPHAGEAL REFLUX DISEASE
     Route: 048
     Dates: start: 20071030
  45. STIOLTO RESPIMAT [Suspect]
     Active Substance: OLODATEROL HYDROCHLORIDE\TIOTROPIUM BROMIDE MONOHYDRATE
     Dosage: 2 PUFF X 1
     Route: 065
  46. CHLORPHENIRAMINE. [Concomitant]
     Active Substance: CHLORPHENIRAMINE
  47. SIMVASTATIN. [Concomitant]
     Active Substance: SIMVASTATIN
  48. FOLIC ACID. [Concomitant]
     Active Substance: FOLIC ACID
  49. ACTONEL [Concomitant]
     Active Substance: RISEDRONATE SODIUM
  50. TRILIPIX [Concomitant]
     Active Substance: FENOFIBRIC ACID
  51. ASPIRIN. [Concomitant]
     Active Substance: ASPIRIN
     Route: 048
     Dates: start: 20071022
  52. MORPHINE [Concomitant]
     Active Substance: MORPHINE
  53. NASONEX [Concomitant]
     Active Substance: MOMETASONE FUROATE
     Route: 048
     Dates: start: 2016, end: 2017
  54. ALLOPURINOL. [Concomitant]
     Active Substance: ALLOPURINOL
  55. GLUCOTROL [Concomitant]
     Active Substance: GLIPIZIDE
  56. SODIUM SUCCINATE [Concomitant]
     Active Substance: SODIUM SUCCINATE HEXAHYDRATE

REACTIONS (8)
  - Chronic kidney disease-mineral and bone disorder [Unknown]
  - Renal failure [Unknown]
  - Azotaemia [Unknown]
  - Tubulointerstitial nephritis [Unknown]
  - End stage renal disease [Unknown]
  - Acute kidney injury [Unknown]
  - Chronic kidney disease [Not Recovered/Not Resolved]
  - Nephrogenic anaemia [Unknown]

NARRATIVE: CASE EVENT DATE: 20150106
